FAERS Safety Report 9052488 (Version 9)
Quarter: 2014Q2

REPORT INFORMATION
  Report Type: Spontaneous
  Country: US (occurrence: US)
  Receive Date: 20130207
  Receipt Date: 20140421
  Transmission Date: 20141212
  Serious: Yes (Life-Threatening, Hospitalization, Other)
  Sender: FDA-Public Use
  Company Number: US-JNJFOC-20130201519

PATIENT
  Age: 5 Year
  Sex: Male
  Weight: 26.67 kg

DRUGS (4)
  1. CHILDREN^S TYLENOL [Suspect]
     Route: 048
  2. CHILDREN^S TYLENOL [Suspect]
     Indication: PRODUCT USED FOR UNKNOWN INDICATION
     Dosage: APPROPRIATE AMOUNTS AT APPROPRIATE TIMES
     Route: 048
     Dates: start: 2011
  3. IBUPROFEN [Suspect]
     Route: 065
  4. IBUPROFEN [Suspect]
     Indication: PYREXIA
     Route: 065

REACTIONS (8)
  - Acute hepatic failure [Unknown]
  - Hepatitis [Unknown]
  - Coagulopathy [Unknown]
  - Transaminases increased [Unknown]
  - Hyperammonaemia [Unknown]
  - Encephalopathy [Unknown]
  - Acute hepatic failure [Unknown]
  - Adverse event [Unknown]
